FAERS Safety Report 8762045 (Version 2)
Quarter: 2012Q4

REPORT INFORMATION
  Report Type: 
  Country: US (occurrence: US)
  Receive Date: 20120829
  Receipt Date: 20120925
  Transmission Date: 20130627
  Serious: Yes (Other)
  Sender: FDA-Public Use
  Company Number: US-PFIZER INC-2012209341

PATIENT
  Age: 35 Year
  Sex: Female

DRUGS (8)
  1. LYRICA [Suspect]
     Dosage: 150 mg, 3x/day
     Route: 048
  2. LYRICA [Suspect]
     Dosage: 150 mg, 2x/day
     Route: 048
  3. XANAX [Suspect]
     Dosage: 1 mg, 3x/day
  4. BUSPAR [Concomitant]
     Dosage: 10 mg, 2x/day
  5. ZANAFLEX [Concomitant]
     Dosage: 4 mg, 3x/day
  6. DICLOFENAC [Concomitant]
     Dosage: 75 mg, 2x/day
  7. LAMICTAL [Concomitant]
     Dosage: 100 mg, 2x/day
  8. HYDROCODONE [Concomitant]
     Dosage: UNK

REACTIONS (5)
  - Bipolar disorder [Unknown]
  - Osteoarthritis [Unknown]
  - Depression [Unknown]
  - Fibromyalgia [Unknown]
  - Anxiety [Unknown]
